FAERS Safety Report 5974644-X (Version None)
Quarter: 2008Q4

REPORT INFORMATION
  Report Type: 
  Country: None (occurrence: None)
  Receive Date: 20081201
  Receipt Date: 20081126
  Transmission Date: 20090506
  Serious: Yes (Hospitalization)
  Sender: FDA-Public Use
  Company Number: FR-PFIZER INC-2008100250

PATIENT
  Age: 61 Year
  Sex: Female

DRUGS (3)
  1. TAHOR [Suspect]
  2. DRUG USED IN DIABETES [Suspect]
  3. ALL OTHER THERAPEUTIC PRODUCTS [Concomitant]

REACTIONS (4)
  - CELL DEATH [None]
  - CHOLESTASIS [None]
  - HYPOGLYCAEMIC COMA [None]
  - LIVER DISORDER [None]
